FAERS Safety Report 16411981 (Version 1)
Quarter: 2019Q2

REPORT INFORMATION
  Report Type: Spontaneous
  Country: US (occurrence: US)
  Receive Date: 20190610
  Receipt Date: 20190610
  Transmission Date: 20190711
  Serious: No
  Sender: FDA-Public Use
  Company Number: US-GALDERMA-US18046650

PATIENT
  Age: 19 Year
  Sex: Female

DRUGS (14)
  1. PROACTIV SOLUTION BLACKHEAD DISSOLVING [Concomitant]
     Active Substance: SALICYLIC ACID
     Indication: SEBORRHOEA
  2. PROACTIV GREEN TEA MOISTURIZER [Concomitant]
     Active Substance: COSMETICS
     Indication: ACNE
     Route: 061
     Dates: start: 20181018, end: 20181024
  3. PROACTIV CLEANSING BODY BAR [Concomitant]
     Active Substance: SALICYLIC ACID
     Indication: ACNE
     Route: 061
     Dates: start: 20181018, end: 20181024
  4. PROACTIV DEEP CLEANSING WASH [Concomitant]
     Active Substance: SALICYLIC ACID
     Indication: SEBORRHOEA
  5. PROACTIV MD ADAPALENE ACNE TREATMENT [Suspect]
     Active Substance: ADAPALENE
     Indication: SEBORRHOEA
  6. PROACTIV MD DAILY OIL CONTROL SPF 30 [Suspect]
     Active Substance: AVOBENZONE\OCTISALATE\OCTOCRYLENE
     Indication: ACNE
     Route: 061
     Dates: start: 20181018, end: 20181024
  7. PROACTIV MD DEEP CLEANSING FACE WASH [Concomitant]
     Active Substance: COSMETICS
     Indication: SEBORRHOEA
  8. PROACTIV MD ADAPALENE ACNE TREATMENT [Suspect]
     Active Substance: ADAPALENE
     Indication: ACNE
     Dosage: 0.1%
     Route: 061
     Dates: start: 20181018, end: 20181024
  9. PROACTIV MD DAILY OIL CONTROL SPF 30 [Suspect]
     Active Substance: AVOBENZONE\OCTISALATE\OCTOCRYLENE
     Indication: SEBORRHOEA
  10. PROACTIV MD DEEP CLEANSING FACE WASH [Concomitant]
     Active Substance: COSMETICS
     Indication: ACNE
     Route: 061
     Dates: start: 20181018, end: 20181024
  11. PROACTIV CLEANSING BODY BAR [Concomitant]
     Active Substance: SALICYLIC ACID
     Indication: SEBORRHOEA
  12. PROACTIV SOLUTION BLACKHEAD DISSOLVING [Concomitant]
     Active Substance: SALICYLIC ACID
     Indication: ACNE
     Route: 061
     Dates: start: 20181018, end: 20181024
  13. PROACTIV GREEN TEA MOISTURIZER [Concomitant]
     Active Substance: COSMETICS
     Indication: SEBORRHOEA
  14. PROACTIV DEEP CLEANSING WASH [Concomitant]
     Active Substance: SALICYLIC ACID
     Indication: ACNE
     Route: 061
     Dates: start: 20181018, end: 20181024

REACTIONS (6)
  - Skin burning sensation [Recovering/Resolving]
  - Skin fissures [Recovering/Resolving]
  - Dry skin [Recovering/Resolving]
  - Skin irritation [Recovering/Resolving]
  - Skin exfoliation [Recovering/Resolving]
  - Skin haemorrhage [Recovering/Resolving]

NARRATIVE: CASE EVENT DATE: 20181021
